FAERS Safety Report 16347145 (Version 1)
Quarter: 2019Q2

REPORT INFORMATION
  Report Type: Spontaneous
  Country: US (occurrence: US)
  Receive Date: 20190523
  Receipt Date: 20190523
  Transmission Date: 20190711
  Serious: Yes (Other)
  Sender: FDA-Public Use
  Company Number: US-TORRENT-00007924

PATIENT
  Age: 87 Year
  Sex: Male
  Weight: 72 kg

DRUGS (3)
  1. LOSARTAN POTASSIUM AND HYDROCHLOROTHIAZIDE [Suspect]
     Active Substance: HYDROCHLOROTHIAZIDE\LOSARTAN POTASSIUM
     Indication: HYPERTENSION
     Dosage: FIVE YEARS AGO
     Dates: start: 2014
  2. DITROPAN [Concomitant]
     Active Substance: OXYBUTYNIN CHLORIDE
     Indication: HYPERTONIC BLADDER
     Dosage: ONE TAB BY MOUTH AT BED TIME
     Route: 048
  3. TAMSULOSIN [Concomitant]
     Active Substance: TAMSULOSIN
     Indication: URINARY RETENTION
     Dosage: ONE CAPSULE BY MOUTH DAILY
     Route: 048

REACTIONS (6)
  - Bladder disorder [Recovering/Resolving]
  - Dysuria [Recovering/Resolving]
  - Renal failure [Recovering/Resolving]
  - Prostatomegaly [Unknown]
  - Bladder catheterisation [Unknown]
  - Renal disorder [Recovering/Resolving]

NARRATIVE: CASE EVENT DATE: 201811
